FAERS Safety Report 15893824 (Version 1)
Quarter: 2019Q1

REPORT INFORMATION
  Report Type: Spontaneous
  Country: US (occurrence: US)
  Receive Date: 20190131
  Receipt Date: 20190131
  Transmission Date: 20190417
  Serious: No
  Sender: FDA-Public Use
  Company Number: US-ELI_LILLY_AND_COMPANY-US201901013402

PATIENT
  Sex: Female

DRUGS (2)
  1. TRULICITY [Suspect]
     Active Substance: DULAGLUTIDE
     Indication: TYPE 2 DIABETES MELLITUS
     Dosage: 0.75 MG, UNKNOWN
     Route: 065
     Dates: start: 201811
  2. TRULICITY [Suspect]
     Active Substance: DULAGLUTIDE
     Dosage: 0.75 MG, UNKNOWN
     Route: 065

REACTIONS (6)
  - Injection site haemorrhage [Not Recovered/Not Resolved]
  - Injection site bruising [Unknown]
  - Stress [Unknown]
  - Blood glucose decreased [Recovering/Resolving]
  - Blood glucose increased [Recovering/Resolving]
  - Injection site mass [Not Recovered/Not Resolved]

NARRATIVE: CASE EVENT DATE: 201812
